FAERS Safety Report 6196564-0 (Version None)
Quarter: 2009Q2

REPORT INFORMATION
  Report Type: 
  Country: None (occurrence: None)
  Receive Date: 20090518
  Receipt Date: 20090518
  Transmission Date: 20091009
  Serious: Yes (Life-Threatening, Hospitalization, Disabling, Other)
  Sender: FDA-Public Use
  Company Number: None

PATIENT
  Sex: Female
  Weight: 72.5755 kg

DRUGS (3)
  1. VENTOLIN HFA [Suspect]
     Indication: DYSPNOEA
     Dosage: 90 MCG PER ACTUATION AS NEEDED PO
     Route: 048
     Dates: start: 20090101, end: 20090301
  2. PROVENTIL-HFA [Suspect]
     Indication: DYSPNOEA
     Dosage: 90 MCG PER ACTUATION AS NEEDED OTHER
     Route: 050
     Dates: start: 20090301, end: 20090515
  3. PRAIR [Concomitant]

REACTIONS (7)
  - DRUG INEFFECTIVE [None]
  - DYSPNOEA [None]
  - EXERCISE TOLERANCE DECREASED [None]
  - MIDDLE INSOMNIA [None]
  - PRODUCT SUBSTITUTION ISSUE [None]
  - THROAT IRRITATION [None]
  - WEIGHT INCREASED [None]
